FAERS Safety Report 6371067-9 (Version None)
Quarter: 2009Q3

REPORT INFORMATION
  Report Type: 
  Country: None (occurrence: None)
  Receive Date: 20090923
  Receipt Date: 20090909
  Transmission Date: 20100115
  Serious: Yes (Death, Hospitalization)
  Sender: FDA-Public Use
  Company Number: PHHO2007US10598

PATIENT
  Sex: Female
  Weight: 43 kg

DRUGS (3)
  1. RAD 666 / RAD 001A [Suspect]
     Indication: RENAL CANCER METASTATIC
     Dosage: 10 MG DAILY
     Route: 048
     Dates: start: 20070621, end: 20070624
  2. PLACEBO COMP-PLA+ [Suspect]
     Indication: RENAL CANCER METASTATIC
     Dosage: 10 MG DAILY
     Route: 048
     Dates: start: 20070412, end: 20090621
  3. NEXAVAR [Concomitant]

REACTIONS (4)
  - ATELECTASIS [None]
  - DEEP VEIN THROMBOSIS [None]
  - DYSPNOEA [None]
  - PNEUMONITIS [None]
